FAERS Safety Report 4754866-6 (Version None)
Quarter: 2005Q3

REPORT INFORMATION
  Report Type: 
  Country: None (occurrence: None)
  Receive Date: 20050829
  Receipt Date: 20050414
  Transmission Date: 20060218
  Serious: Yes (Death, Other)
  Sender: FDA-Public Use
  Company Number: US-MERCK-0504USA02932

PATIENT
  Age: 72 Year
  Sex: Male
  Weight: 96 kg

DRUGS (4)
  1. VIOXX [Suspect]
     Indication: OSTEOARTHRITIS
     Route: 048
     Dates: start: 20001208, end: 20011216
  2. VIOXX [Suspect]
     Indication: BACK PAIN
     Route: 048
     Dates: start: 20001208, end: 20011216
  3. HYDRODIURIL [Concomitant]
     Route: 065
  4. NORVASC [Concomitant]
     Route: 065

REACTIONS (7)
  - CARDIOPULMONARY FAILURE [None]
  - CEREBROVASCULAR ACCIDENT [None]
  - DYSPNOEA [None]
  - HERNIA [None]
  - HYPERTENSION [None]
  - INJURY [None]
  - PANIC DISORDER [None]
